FAERS Safety Report 22630344 (Version 1)
Quarter: 2023Q2

REPORT INFORMATION
  Report Type: Spontaneous
  Country: BR (occurrence: BR)
  Receive Date: 20230622
  Receipt Date: 20230622
  Transmission Date: 20230722
  Serious: Yes (Other)
  Sender: FDA-Public Use
  Company Number: BR-AMGEN-BRASP2023106146

PATIENT
  Sex: Male

DRUGS (1)
  1. ADALIMUMAB [Suspect]
     Active Substance: ADALIMUMAB
     Indication: Combined immunodeficiency
     Route: 065

REACTIONS (8)
  - Gastrointestinal necrosis [Unknown]
  - Splenomegaly [Unknown]
  - Vasculitis gastrointestinal [Unknown]
  - Drug effective for unapproved indication [Unknown]
  - Myalgia [Unknown]
  - Gastrointestinal disorder [Unknown]
  - Off label use [Unknown]
  - Arthralgia [Unknown]
